FAERS Safety Report 6861850-5 (Version None)
Quarter: 2010Q3

REPORT INFORMATION
  Report Type: 
  Country: None (occurrence: None)
  Receive Date: 20100721
  Receipt Date: 20100714
  Transmission Date: 20110219
  Serious: No
  Sender: FDA-Public Use
  Company Number: US-BIOGENIDEC-2010BI023725

PATIENT
  Sex: Male

DRUGS (1)
  1. AVONEX [Suspect]
     Indication: MULTIPLE SCLEROSIS
     Route: 030
     Dates: start: 20091101

REACTIONS (14)
  - AGGRESSION [None]
  - ANGER [None]
  - ANXIETY [None]
  - BLINDNESS [None]
  - CHILLS [None]
  - DYSKINESIA [None]
  - EYE MOVEMENT DISORDER [None]
  - MEMORY IMPAIRMENT [None]
  - MULTIPLE SCLEROSIS RELAPSE [None]
  - NASAL CONGESTION [None]
  - NERVOUS SYSTEM DISORDER [None]
  - PARANOIA [None]
  - RHINORRHOEA [None]
  - URINARY INCONTINENCE [None]
